FAERS Safety Report 19063241 (Version 1)
Quarter: 2021Q1

REPORT INFORMATION
  Report Type: Spontaneous
  Country: US (occurrence: US)
  Receive Date: 20210326
  Receipt Date: 20210326
  Transmission Date: 20210420
  Serious: Yes (Disabling)
  Sender: FDA-Public Use
  Company Number: None

PATIENT
  Age: 31 Year
  Sex: Female
  Weight: 54 kg

DRUGS (7)
  1. SUNDOWN FOLATE [Concomitant]
  2. BLUEBONNET SELENIUM [Concomitant]
  3. LEVOTHYROXINE SODUIM (GENERIC OF SYNTHROID) [Suspect]
     Active Substance: LEVOTHYROXINE
     Indication: AUTOIMMUNE THYROIDITIS
     Dosage: ?          QUANTITY:1 TABLET(S);?
     Route: 048
  4. TIROCENT [Concomitant]
  5. IODIZED SALT 68 MCG [Concomitant]
  6. SYNTHROID [Suspect]
     Active Substance: LEVOTHYROXINE SODIUM
     Indication: AUTOIMMUNE THYROIDITIS
     Dosage: ?          QUANTITY:1 TABLET(S);?
     Route: 048
  7. HOMEMADE CALCIUM POWDER [Concomitant]

REACTIONS (54)
  - Chest discomfort [None]
  - Muscular weakness [None]
  - Gastrooesophageal reflux disease [None]
  - Erythema [None]
  - Dyspnoea [None]
  - Lip swelling [None]
  - Lip haemorrhage [None]
  - Sensory disturbance [None]
  - Myalgia [None]
  - Abdominal pain upper [None]
  - Diarrhoea [None]
  - Tinnitus [None]
  - Choking [None]
  - Dry mouth [None]
  - Palpitations [None]
  - Paraesthesia oral [None]
  - Loss of personal independence in daily activities [None]
  - Arthralgia [None]
  - Joint stiffness [None]
  - Balance disorder [None]
  - Throat tightness [None]
  - Hyperhidrosis [None]
  - Food allergy [None]
  - Pain in extremity [None]
  - Fatigue [None]
  - Wheezing [None]
  - Epistaxis [None]
  - Chapped lips [None]
  - Pain [None]
  - Infertility [None]
  - Emotional disorder [None]
  - Product substitution issue [None]
  - Hyperthyroidism [None]
  - Vertigo [None]
  - Confusional state [None]
  - Dandruff [None]
  - Gingival swelling [None]
  - Alopecia [None]
  - Intentional product use issue [None]
  - Muscle spasms [None]
  - Musculoskeletal chest pain [None]
  - Pain of skin [None]
  - Cough [None]
  - Vulvovaginal dryness [None]
  - Deafness unilateral [None]
  - Skin exfoliation [None]
  - Allergy to plants [None]
  - Derealisation [None]
  - Depressed level of consciousness [None]
  - Rash pruritic [None]
  - Rash [None]
  - Dry skin [None]
  - Pharyngeal swelling [None]
  - Nasopharyngitis [None]
